FAERS Safety Report 4656035-7 (Version None)
Quarter: 2005Q2

REPORT INFORMATION
  Report Type: 
  Country: None (occurrence: None)
  Receive Date: 20050509
  Receipt Date: 20050426
  Transmission Date: 20051028
  Serious: Yes (Hospitalization)
  Sender: FDA-Public Use
  Company Number: US-AMGEN-PRA124634

PATIENT
  Sex: Female

DRUGS (9)
  1. PEGFILGRASTIM [Suspect]
     Indication: CHEMOTHERAPY
     Route: 058
     Dates: start: 20041209, end: 20050325
  2. RITUXAN [Suspect]
     Dates: start: 20041209, end: 20050120
  3. RITUXAN [Suspect]
     Dates: start: 20050210, end: 20050324
  4. DOXORUBICIN HYDROCHLORIDE [Suspect]
     Dates: start: 20041209, end: 20050120
  5. DOXORUBICIN HYDROCHLORIDE [Suspect]
     Dates: start: 20050210, end: 20050324
  6. VINCRISTINE [Suspect]
     Dates: start: 20041209, end: 20050303
  7. PREDNISONE TAB [Suspect]
     Dates: start: 20041209, end: 20050324
  8. CYCLOPHOSPHAMIDE [Suspect]
     Dates: start: 20041209, end: 20050120
  9. CYCLOPHOSPHAMIDE [Suspect]
     Dates: start: 20050210, end: 20050324

REACTIONS (4)
  - ATRIAL FIBRILLATION [None]
  - FEBRILE NEUTROPENIA [None]
  - PLATELET COUNT DECREASED [None]
  - PULMONARY EMBOLISM [None]
